FAERS Safety Report 7208464-5 (Version None)
Quarter: 2010Q4

REPORT INFORMATION
  Report Type: 
  Country: None (occurrence: None)
  Receive Date: 20101126
  Receipt Date: 20100805
  Transmission Date: 20110411
  Serious: No
  Sender: FDA-Public Use
  Company Number: 310092

PATIENT
  Age: 73 Year
  Sex: Male

DRUGS (2)
  1. VICTOZA [Suspect]
     Indication: TYPE 2 DIABETES MELLITUS
     Dosage: 1.2 MG, SUBCUTANEOUS ; 1.6 MG, SUBCUTANEOUS
     Route: 058
  2. LANTUS [Suspect]
     Indication: TYPE 2 DIABETES MELLITUS
     Dosage: SUBCUTANEOUS
     Route: 058

REACTIONS (5)
  - BLOOD GLUCOSE INCREASED [None]
  - BLOOD PRESSURE FLUCTUATION [None]
  - DECREASED APPETITE [None]
  - DIZZINESS [None]
  - WEIGHT DECREASED [None]
